FAERS Safety Report 9091942 (Version 1)
Quarter: 2013Q1

REPORT INFORMATION
  Report Type: Report from Study
  Country: US (occurrence: US)
  Receive Date: 20130131
  Receipt Date: 20130131
  Transmission Date: 20140127
  Serious: No
  Sender: FDA-Public Use
  Company Number: US-ABBOTT-12P-163-0994687-00

PATIENT
  Age: 33 Year
  Sex: Female

DRUGS (4)
  1. HUMIRA [Suspect]
     Indication: PUSTULAR PSORIASIS
     Dosage: 40MG WEEKLY
     Dates: start: 20121008
  2. HUMIRA [Suspect]
     Indication: ARTHRALGIA
  3. CYCLOSPORIN [Concomitant]
     Indication: PUSTULAR PSORIASIS
     Dosage: 2 PILLS PER DAY
  4. UNKNOWN ORAL CONTRACEPTIVE PILL [Concomitant]
     Indication: CONTRACEPTION

REACTIONS (4)
  - Condition aggravated [Recovered/Resolved]
  - Wrong technique in drug usage process [Recovered/Resolved]
  - Injection site pain [Recovered/Resolved]
  - Injection site haemorrhage [Recovered/Resolved]
